FAERS Safety Report 7335290-9 (Version None)
Quarter: 2011Q1

REPORT INFORMATION
  Report Type: 
  Country: None (occurrence: None)
  Receive Date: 20110217
  Receipt Date: 20101001
  Transmission Date: 20110831
  Serious: Yes (Life-Threatening, Other)
  Sender: FDA-Public Use
  Company Number: 713123

PATIENT
  Age: 76 Year
  Sex: Male
  Weight: 110 kg

DRUGS (12)
  1. VANCOMYCIN HYDROCHLORIDE FOR INJECTION (VANCOMYCIN HYDROCHLORIDE) [Concomitant]
  2. (AMIODARONE) [Concomitant]
  3. TIMOPTIC [Concomitant]
  4. PRECEDEX [Suspect]
     Indication: SEDATION
     Dosage: 0.2 MCG/KG/HOUR, INTRAVENOUS, 0.2 MCG/KG/HOUR, 0.9 MCG/KG/HOUR, 0.7 MCG/KG/HOUR, 0.4 MCG/KG/HOUR
     Route: 041
     Dates: start: 20100924, end: 20100926
  5. PRECEDEX [Suspect]
     Indication: SEDATION
     Dosage: 0.2 MCG/KG/HOUR, INTRAVENOUS, 0.2 MCG/KG/HOUR, 0.9 MCG/KG/HOUR, 0.7 MCG/KG/HOUR, 0.4 MCG/KG/HOUR
     Route: 041
     Dates: start: 20100926, end: 20100926
  6. PRECEDEX [Suspect]
     Indication: SEDATION
     Dosage: 0.2 MCG/KG/HOUR, INTRAVENOUS, 0.2 MCG/KG/HOUR, 0.9 MCG/KG/HOUR, 0.7 MCG/KG/HOUR, 0.4 MCG/KG/HOUR
     Route: 041
     Dates: start: 20100926, end: 20100926
  7. PRECEDEX [Suspect]
     Indication: SEDATION
     Dosage: 0.2 MCG/KG/HOUR, INTRAVENOUS, 0.2 MCG/KG/HOUR, 0.9 MCG/KG/HOUR, 0.7 MCG/KG/HOUR, 0.4 MCG/KG/HOUR
     Route: 041
     Dates: start: 20100926, end: 20100926
  8. FRAGMIN [Concomitant]
  9. TOBRAMYCIN [Concomitant]
  10. KEPPRA [Concomitant]
  11. ZOSYN [Concomitant]
  12. (METOPROLOL) [Concomitant]

REACTIONS (1)
  - CARDIAC ARREST [None]
